FAERS Safety Report 6702706-8 (Version None)
Quarter: 2010Q2

REPORT INFORMATION
  Report Type: 
  Country: None (occurrence: None)
  Receive Date: 20100429
  Receipt Date: 20100420
  Transmission Date: 20101027
  Serious: No
  Sender: FDA-Public Use
  Company Number: US-B.I. PHARMACEUTICALS,INC./RIDGEFIELD-2010-BP-04524BP

PATIENT
  Sex: Female

DRUGS (3)
  1. MIRAPEX [Suspect]
     Indication: MUSCLE SPASMS
     Dosage: 0.25 MG
     Route: 048
     Dates: start: 20091022, end: 20091201
  2. MIRAPEX [Suspect]
     Dosage: 0.5 MG
     Route: 048
     Dates: start: 20091201, end: 20100418
  3. MIRAPEX [Suspect]
     Dosage: 0.75 MG
     Route: 048
     Dates: start: 20100419

REACTIONS (4)
  - CONDITION AGGRAVATED [None]
  - DRUG EFFECT DECREASED [None]
  - INSOMNIA [None]
  - MUSCLE SPASMS [None]
